FAERS Safety Report 18542093 (Version 6)
Quarter: 2021Q4

REPORT INFORMATION
  Report Type: Report from Study
  Country: US (occurrence: US)
  Receive Date: 20201124
  Receipt Date: 20211027
  Transmission Date: 20220303
  Serious: Yes (Other)
  Sender: FDA-Public Use
  Company Number: NVSC2020US306226

PATIENT
  Age: 72 Year
  Sex: Male

DRUGS (1)
  1. ENTRESTO [Suspect]
     Active Substance: SACUBITRIL\VALSARTAN
     Indication: Product used for unknown indication
     Dosage: 50 MG, BID (24/26 MG)
     Route: 048
     Dates: start: 20201107

REACTIONS (7)
  - Neuropathy peripheral [Unknown]
  - Dyspnoea [Unknown]
  - Blood pressure fluctuation [Unknown]
  - Pulse abnormal [Unknown]
  - Weight increased [Unknown]
  - Upper-airway cough syndrome [Unknown]
  - Cardiac disorder [Unknown]

NARRATIVE: CASE EVENT DATE: 20201107
